FAERS Safety Report 4784425-0 (Version None)
Quarter: 2005Q3

REPORT INFORMATION
  Report Type: 
  Country: None (occurrence: None)
  Receive Date: 20050930
  Receipt Date: 20050922
  Transmission Date: 20060218
  Serious: Yes (Death)
  Sender: FDA-Public Use
  Company Number: DE-JNJFOC-20050603384

PATIENT
  Sex: Male

DRUGS (4)
  1. HALDOL [Suspect]
     Route: 048
  2. TRAMADOL [Suspect]
     Indication: DRUG USE FOR UNKNOWN INDICATION
  3. XIMOVAN [Concomitant]
  4. OXAZEPAM [Concomitant]

REACTIONS (2)
  - BRONCHOPNEUMONIA [None]
  - RESPIRATORY DEPRESSION [None]
